FAERS Safety Report 6633356-X (Version None)
Quarter: 2010Q1

REPORT INFORMATION
  Report Type: 
  Country: None (occurrence: None)
  Receive Date: 20100312
  Receipt Date: 20090722
  Transmission Date: 20100710
  Serious: No
  Sender: FDA-Public Use
  Company Number: US-ABBOTT-09P-163-0587797-00

PATIENT
  Age: 49 Year
  Sex: Female
  Weight: 47.216 kg

DRUGS (2)
  1. E.E.S. [Suspect]
     Indication: SKIN ULCER
     Dates: start: 19890101
  2. E.E.S. [Suspect]
     Dates: start: 20060101

REACTIONS (3)
  - BACK PAIN [None]
  - DYSPEPSIA [None]
  - RENAL DISORDER [None]
